FAERS Safety Report 12228151 (Version 1)
Quarter: 2016Q1

REPORT INFORMATION
  Report Type: Spontaneous
  Country: US (occurrence: None)
  Receive Date: 20160330
  Receipt Date: 20160330
  Transmission Date: 20160526
  Serious: No
  Sender: FDA-Public Use
  Company Number: None

PATIENT
  Age: 56 Year
  Sex: Male

DRUGS (14)
  1. ENOXAPARIN [Concomitant]
     Active Substance: ENOXAPARIN
  2. OXYCONTIN [Concomitant]
     Active Substance: OXYCODONE HYDROCHLORIDE
  3. FLUOXETINE [Concomitant]
     Active Substance: FLUOXETINE HYDROCHLORIDE
  4. FERROUS SUL [Concomitant]
  5. MORPHINE SUL [Concomitant]
  6. PREDNISONE. [Concomitant]
     Active Substance: PREDNISONE
  7. OXYCODONE [Concomitant]
     Active Substance: OXYCODONE
  8. DIAZEPAM. [Concomitant]
     Active Substance: DIAZEPAM
  9. LISINOPRIL AND HYDROCHLOROTHIAZIDE [Concomitant]
     Active Substance: HYDROCHLOROTHIAZIDE\LISINOPRIL
  10. MELOXICAM. [Concomitant]
     Active Substance: MELOXICAM
  11. STELARA [Suspect]
     Active Substance: USTEKINUMAB
     Indication: PSORIATIC ARTHROPATHY
     Dosage: 90 MG Q12W SC
     Route: 058
     Dates: start: 20150307, end: 201601
  12. LORAZEPAM. [Concomitant]
     Active Substance: LORAZEPAM
  13. METHOCARBAMOL. [Concomitant]
     Active Substance: METHOCARBAMOL
  14. VSL [Concomitant]

REACTIONS (3)
  - Therapy cessation [None]
  - Drug ineffective [None]
  - Therapy change [None]

NARRATIVE: CASE EVENT DATE: 201601
